FAERS Safety Report 9357847 (Version 2)
Quarter: 2013Q3

REPORT INFORMATION
  Report Type: Spontaneous
  Country: DE (occurrence: DE)
  Receive Date: 20130620
  Receipt Date: 20130912
  Transmission Date: 20140515
  Serious: Yes (Death)
  Sender: FDA-Public Use
  Company Number: DE-ASTELLAS-2013US006372

PATIENT
  Age: 64 Year
  Sex: Male
  Weight: 63 kg

DRUGS (2)
  1. AMBISOME [Suspect]
     Indication: FUNGAL INFECTION
     Dosage: UNK
     Route: 065
     Dates: start: 20121029
  2. BAL8557 [Concomitant]
     Indication: FUNGAL INFECTION
     Dosage: TID
     Route: 042
     Dates: end: 20121028

REACTIONS (3)
  - Drug ineffective [Unknown]
  - Fungal infection [Fatal]
  - Multi-organ failure [Fatal]
